FAERS Safety Report 7582252-2 (Version None)
Quarter: 2011Q2

REPORT INFORMATION
  Report Type: 
  Country: None (occurrence: None)
  Receive Date: 20110527
  Receipt Date: 20101208
  Transmission Date: 20111010
  Serious: Yes (Other)
  Sender: FDA-Public Use
  Company Number: US201008005092

PATIENT
  Age: 63 Year
  Sex: Female
  Weight: 108.8 kg

DRUGS (11)
  1. INSULIN (INSULIN) [Concomitant]
  2. GLYBURIDE [Concomitant]
  3. TENORMIN [Concomitant]
  4. BYETTA [Suspect]
     Indication: PRODUCT USED FOR UNKNOWN INDICATION
     Dates: start: 20070301
  5. COZAAR [Concomitant]
  6. ACETAMINOPHEN [Concomitant]
  7. VICODIN [Concomitant]
  8. NSAIDS [Concomitant]
  9. FUROSEMIDE [Concomitant]
  10. HYDROCODONE (HYDROCODONE) [Concomitant]
  11. RANITIDINE [Concomitant]

REACTIONS (6)
  - PANCREATITIS [None]
  - NAUSEA [None]
  - ABDOMINAL PAIN [None]
  - OFF LABEL USE [None]
  - HEPATIC ENZYME INCREASED [None]
  - FATIGUE [None]
